FAERS Safety Report 24024360 (Version 1)
Quarter: 2024Q2

REPORT INFORMATION
  Report Type: Spontaneous
  Country: CN (occurrence: CN)
  Receive Date: 20240627
  Receipt Date: 20240627
  Transmission Date: 20240715
  Serious: No
  Sender: FDA-Public Use
  Company Number: CN-ROCHE-3467337

PATIENT
  Age: 62 Year
  Sex: Female

DRUGS (1)
  1. ALECTINIB [Suspect]
     Active Substance: ALECTINIB
     Indication: Neuroendocrine carcinoma
     Route: 065
     Dates: start: 202010

REACTIONS (1)
  - Hepatic function abnormal [Recovered/Resolved]
